FAERS Safety Report 13153451 (Version 2)
Quarter: 2017Q1

REPORT INFORMATION
  Report Type: Spontaneous
  Country: US (occurrence: US)
  Receive Date: 20170126
  Receipt Date: 20170201
  Transmission Date: 20170428
  Serious: Yes (Hospitalization)
  Sender: FDA-Public Use
  Company Number: US-HORIZON-BUP-0009-2017

PATIENT
  Age: 36 Year
  Sex: Female

DRUGS (2)
  1. ARGININE [Concomitant]
     Active Substance: ARGININE
  2. BUPHENYL [Suspect]
     Active Substance: SODIUM PHENYLBUTYRATE
     Indication: ARGININOSUCCINATE SYNTHETASE DEFICIENCY
     Dosage: 17G DIVIDED 5 TIMES PER DAY
     Dates: start: 20150918

REACTIONS (1)
  - Hyperammonaemic crisis [Recovering/Resolving]

NARRATIVE: CASE EVENT DATE: 20161122
